FAERS Safety Report 4622414-7 (Version None)
Quarter: 2005Q1

REPORT INFORMATION
  Report Type: 
  Country: None (occurrence: None)
  Receive Date: 20050317
  Receipt Date: 20040219
  Transmission Date: 20050727
  Serious: Yes (Other)
  Sender: FDA-Public Use
  Company Number: PHEH2004US02159

PATIENT
  Age: 50 Year
  Sex: Female

DRUGS (3)
  1. TRILEPTAL [Suspect]
     Indication: AFFECTIVE DISORDER
     Dosage: 300 MG QD IN AM ORAL
     Route: 048
     Dates: start: 20040218
  2. METHADONE HCL [Concomitant]
  3. KLONOPIN [Concomitant]

REACTIONS (1)
  - BLOOD SODIUM DECREASED [None]
